FAERS Safety Report 24161980 (Version 1)
Quarter: 2024Q3

REPORT INFORMATION
  Report Type: Spontaneous
  Country: ES (occurrence: ES)
  Receive Date: 20240801
  Receipt Date: 20240801
  Transmission Date: 20241017
  Serious: Yes (Disabling, Other)
  Sender: CIPLA
  Company Number: ES-AEMPS-1549197

PATIENT

DRUGS (2)
  1. TENOFOVIR [Suspect]
     Active Substance: TENOFOVIR
     Indication: Antiviral prophylaxis
     Dosage: 245 MILLIGRAM, QD (24 HRS)
     Route: 048
     Dates: start: 20210616, end: 20221121
  2. ENTECAVIR [Concomitant]
     Active Substance: ENTECAVIR
     Indication: Antiviral prophylaxis
     Dosage: 0.5 MILLIGRAM, EVERY 72 HOURS
     Route: 048
     Dates: start: 20221121, end: 20240628

REACTIONS (2)
  - Chronic kidney disease [Recovered/Resolved with Sequelae]
  - Fanconi syndrome acquired [Recovered/Resolved with Sequelae]

NARRATIVE: CASE EVENT DATE: 20211105
